FAERS Safety Report 5857907-8 (Version None)
Quarter: 2008Q3

REPORT INFORMATION
  Report Type: 
  Country: None (occurrence: None)
  Receive Date: 20080822
  Receipt Date: 20080807
  Transmission Date: 20090109
  Serious: Yes (Hospitalization)
  Sender: FDA-Public Use
  Company Number: 2008S1014643

PATIENT
  Age: 54 Year
  Sex: Female

DRUGS (5)
  1. OMEPRAZOLE [Suspect]
     Indication: DRUG USE FOR UNKNOWN INDICATION
     Dosage: 20 MG DAILY ORAL
     Route: 048
     Dates: end: 20080528
  2. ASPIRIN [Concomitant]
  3. DICLOFENAC [Concomitant]
  4. QUININE SULPHATE [Concomitant]
  5. RAMIPRIL [Concomitant]

REACTIONS (1)
  - HYPOMAGNESAEMIA [None]
